FAERS Safety Report 18402888 (Version 1)
Quarter: 2020Q4

REPORT INFORMATION
  Report Type: Spontaneous
  Country: US (occurrence: US)
  Receive Date: 20201020
  Receipt Date: 20201020
  Transmission Date: 20210114
  Serious: No
  Sender: FDA-Public Use
  Company Number: US-MSNLABS-2020MSNSPO00384

PATIENT

DRUGS (4)
  1. CAPECITABINE TABLETS 500 MG [Suspect]
     Active Substance: CAPECITABINE
     Indication: BREAST CANCER
     Dosage: 4 TABLETS IN THE MORNING AND EVENING FOR TWO WEEKS ON AND ONE WEEK OFF
     Route: 065
     Dates: start: 202009
  2. HERCEPTIN [Concomitant]
     Active Substance: TRASTUZUMAB
     Indication: PRODUCT USED FOR UNKNOWN INDICATION
     Dosage: UNKNOWN
     Route: 065
  3. CAPECITABINE TABLETS 500 MG [Suspect]
     Active Substance: CAPECITABINE
     Dosage: DECREASED DOSE
     Route: 065
  4. TUKYSA [Concomitant]
     Active Substance: TUCATINIB
     Indication: PRODUCT USED FOR UNKNOWN INDICATION
     Dosage: UNKNOWN
     Route: 065

REACTIONS (2)
  - Chest pain [Unknown]
  - Chest discomfort [Unknown]
